FAERS Safety Report 15255789 (Version 2)
Quarter: 2018Q3

REPORT INFORMATION
  Report Type: Spontaneous
  Country: JP (occurrence: JP)
  Receive Date: 20180808
  Receipt Date: 20180823
  Transmission Date: 20181010
  Serious: Yes (Death, Other)
  Sender: FDA-Public Use
  Company Number: JP-PFIZER INC-2018312030

PATIENT
  Age: 67 Year
  Sex: Female

DRUGS (8)
  1. TELMISARTAN. [Concomitant]
     Active Substance: TELMISARTAN
     Dosage: 20 (UNIT WAS UNKNOWN), DAILY
  2. SOMAVERT [Suspect]
     Active Substance: PEGVISOMANT
     Dosage: 30 MG, DAILY
     Route: 042
     Dates: start: 20180718, end: 20180728
  3. ADRENALINE HCL [Concomitant]
     Dosage: UNK
  4. CORTRIL [HYDROCORTISONE ACETATE] [Concomitant]
     Dosage: 30 (UNIT WAS UNKNOWN), DAILY
     Dates: start: 2017
  5. THYRADIN S [Concomitant]
     Active Substance: LEVOTHYROXINE SODIUM
     Dosage: 200 (UNIT WAS UNKNOWN), DAILY
     Dates: start: 2017
  6. NEXIUM [ESOMEPRAZOLE MAGNESIUM] [Concomitant]
     Dosage: 20 (UNIT WAS UNKNOWN), DAILY
     Dates: start: 2017
  7. ROSUVASTATIN. [Concomitant]
     Active Substance: ROSUVASTATIN
     Dosage: 2.5 (UNIT WAS UNKNOWN), DAILY
  8. LASIX [FUROSEMIDE SODIUM] [Concomitant]
     Dosage: 10 (UNIT WAS UNKNOWN), DAILY

REACTIONS (2)
  - Neoplasm progression [Fatal]
  - Incorrect route of drug administration [Unknown]

NARRATIVE: CASE EVENT DATE: 20180718
